FAERS Safety Report 8166789-3 (Version None)
Quarter: 2012Q1

REPORT INFORMATION
  Report Type: 
  Country: None (occurrence: None)
  Receive Date: 20120227
  Receipt Date: 20111227
  Transmission Date: 20120608
  Serious: No
  Sender: FDA-Public Use
  Company Number: US-MYLANLABS-2011S1026258

PATIENT
  Age: 77 Year
  Sex: Male

DRUGS (2)
  1. ASPIRIN [Concomitant]
     Route: 048
  2. LANSOPRAZOLE [Suspect]
     Indication: GASTROOESOPHAGEAL REFLUX DISEASE
     Route: 048
     Dates: start: 20100201, end: 20111101

REACTIONS (4)
  - BLEEDING TIME PROLONGED [None]
  - INCREASED TENDENCY TO BRUISE [None]
  - ABNORMAL FAECES [None]
  - DYSGEUSIA [None]
